FAERS Safety Report 14985122 (Version 2)
Quarter: 2018Q2

REPORT INFORMATION
  Report Type: Spontaneous
  Country: DE (occurrence: DE)
  Receive Date: 20180607
  Receipt Date: 20180619
  Transmission Date: 20180711
  Serious: Yes (Other)
  Sender: FDA-Public Use
  Company Number: DE-TEVA-2018-DE-902946

PATIENT
  Age: 60 Year
  Sex: Male
  Weight: 102 kg

DRUGS (1)
  1. DOXYCYCLINE. [Suspect]
     Active Substance: DOXYCYCLINE
     Indication: BRONCHITIS
     Dosage: 200 MILLIGRAM DAILY;
     Route: 048
     Dates: start: 20180302

REACTIONS (5)
  - Tenderness [Recovered/Resolved]
  - Pain [Recovering/Resolving]
  - Dermatitis exfoliative [Recovering/Resolving]
  - Dermatitis bullous [Recovering/Resolving]
  - Blood blister [Recovering/Resolving]

NARRATIVE: CASE EVENT DATE: 20180302
